FAERS Safety Report 6599228-4 (Version None)
Quarter: 2010Q1

REPORT INFORMATION
  Report Type: 
  Country: None (occurrence: None)
  Receive Date: 20100224
  Receipt Date: 20100216
  Transmission Date: 20100710
  Serious: Yes (Hospitalization, Other)
  Sender: FDA-Public Use
  Company Number: PHHY2009GB19614

PATIENT
  Age: 72 Year
  Sex: Male
  Weight: 80 kg

DRUGS (2)
  1. ALISKIREN [Suspect]
     Indication: HYPERTENSION
     Dosage: 150 MG /UNK
     Route: 048
  2. BENDROFLUMETHIAZIDE [Concomitant]
     Indication: HYPERTENSION
     Route: 048

REACTIONS (3)
  - ASTHENIA [None]
  - CONFUSIONAL STATE [None]
  - HYPONATRAEMIA [None]
